FAERS Safety Report 19711601 (Version 1)
Quarter: 2021Q3

REPORT INFORMATION
  Report Type: Spontaneous
  Country: CN (occurrence: CN)
  Receive Date: 20210816
  Receipt Date: 20210816
  Transmission Date: 20211014
  Serious: Yes (Hospitalization, Other)
  Sender: FDA-Public Use
  Company Number: CN-PFIZER INC-202101015472

PATIENT
  Age: 2 Year
  Sex: Female
  Weight: 13.5 kg

DRUGS (10)
  1. SODIUM CHLORIDE. [Concomitant]
     Active Substance: SODIUM CHLORIDE
     Indication: VEHICLE SOLUTION USE
     Dosage: 6 ML, 1X/DAY
     Route: 037
     Dates: start: 20210731, end: 20210731
  2. METHOTREXATE. [Suspect]
     Active Substance: METHOTREXATE
     Indication: LEUKAEMIA
  3. CYTOSAR [Suspect]
     Active Substance: CYTARABINE
     Indication: LEUKAEMIA
     Dosage: 0.043 G, 1X/DAY
     Route: 041
     Dates: start: 20210731, end: 20210803
  4. MERCAPTOPURINE. [Suspect]
     Active Substance: MERCAPTOPURINE
     Indication: LEUKAEMIA
  5. METHOTREXATE. [Suspect]
     Active Substance: METHOTREXATE
     Indication: CHEMOTHERAPY
     Dosage: 10 MG, 1X/DAY
     Route: 037
     Dates: start: 20210731, end: 20210731
  6. SODIUM CHLORIDE. [Concomitant]
     Active Substance: SODIUM CHLORIDE
     Dosage: 20 ML, 1X/DAY
     Route: 041
     Dates: start: 20210731, end: 20210803
  7. DEXAMETHASONE SODIUM PHOSPHATE. [Concomitant]
     Active Substance: DEXAMETHASONE SODIUM PHOSPHATE
     Indication: LEUKAEMIA
  8. MERCAPTOPURINE. [Suspect]
     Active Substance: MERCAPTOPURINE
     Indication: CHEMOTHERAPY
     Dosage: 37.5 MG, 1X/DAY
     Route: 048
     Dates: start: 20210730, end: 20210802
  9. DEXAMETHASONE SODIUM PHOSPHATE. [Concomitant]
     Active Substance: DEXAMETHASONE SODIUM PHOSPHATE
     Indication: CHEMOTHERAPY
     Dosage: 5 MG, 1X/DAY
     Route: 037
     Dates: start: 20210731, end: 20210731
  10. CYTOSAR [Suspect]
     Active Substance: CYTARABINE
     Indication: CHEMOTHERAPY
     Dosage: 0.025 G, 1X/DAY
     Route: 037
     Dates: start: 20210731, end: 20210731

REACTIONS (3)
  - Condition aggravated [Unknown]
  - Drug-induced liver injury [Unknown]
  - Transaminases increased [Unknown]

NARRATIVE: CASE EVENT DATE: 20210804
